FAERS Safety Report 4458098-0 (Version None)
Quarter: 2004Q3

REPORT INFORMATION
  Report Type: 
  Country: None (occurrence: None)
  Receive Date: 20040923
  Receipt Date: 20021220
  Transmission Date: 20050211
  Serious: Yes (Other)
  Sender: FDA-Public Use
  Company Number: CHPA2002US06778

PATIENT
  Age: 4 Year
  Sex: Male

DRUGS (2)
  1. TRIAMINIC COLD AND ALLERGY (NCH) (CHLOROPHENIRAMINE MALEATE, PSEUDOEPH [Suspect]
     Indication: HYPERSENSITIVITY
     Dosage: 1 TSP, EVERY 4-6 HOURS, ORAL
     Route: 048
     Dates: start: 20020401, end: 20020601
  2. ZYRTEC [Suspect]

REACTIONS (5)
  - CONDITION AGGRAVATED [None]
  - GENERALISED OEDEMA [None]
  - HYPERSENSITIVITY [None]
  - NAUSEA [None]
  - URTICARIA [None]
